FAERS Safety Report 6252632-6 (Version None)
Quarter: 2009Q2

REPORT INFORMATION
  Report Type: 
  Country: None (occurrence: None)
  Receive Date: 20090629
  Receipt Date: 20090620
  Transmission Date: 20091009
  Serious: Yes (Other)
  Sender: FDA-Public Use
  Company Number: CHPA2009US13810

PATIENT
  Sex: Female

DRUGS (1)
  1. NODOZ(NCH) (CAFFEINE) CAPLET [Suspect]
     Dosage: 2000MG, ONCE/SINGLE, ORAL
     Route: 048
     Dates: start: 20090620, end: 20090620

REACTIONS (4)
  - ANXIETY [None]
  - INCORRECT DOSE ADMINISTERED [None]
  - MALAISE [None]
  - PYREXIA [None]
